FAERS Safety Report 13877118 (Version 3)
Quarter: 2021Q3

REPORT INFORMATION
  Report Type: Spontaneous
  Country: JP (occurrence: JP)
  Receive Date: 20170817
  Receipt Date: 20210909
  Transmission Date: 20211014
  Serious: Yes (Hospitalization)
  Sender: FDA-Public Use
  Company Number: JP-GLAXOSMITHKLINE-JP2017JPN125508

PATIENT
  Age: 70 Year
  Sex: Female

DRUGS (1)
  1. RELVAR ELLIPTA [Suspect]
     Active Substance: FLUTICASONE FUROATE\VILANTEROL TRIFENATATE
     Indication: COUGH VARIANT ASTHMA
     Dosage: UNK
     Route: 055
     Dates: start: 2014

REACTIONS (2)
  - Dysphonia [Recovering/Resolving]
  - Hip surgery [Recovering/Resolving]
